FAERS Safety Report 7281611-5 (Version None)
Quarter: 2011Q1

REPORT INFORMATION
  Report Type: 
  Country: None (occurrence: None)
  Receive Date: 20110208
  Receipt Date: 20110203
  Transmission Date: 20110831
  Serious: Yes (Death)
  Sender: FDA-Public Use
  Company Number: PHHY2010US90448

PATIENT
  Sex: Female

DRUGS (6)
  1. LUMERAL [Concomitant]
  2. FOLIC ACID [Concomitant]
     Indication: SICKLE CELL ANAEMIA
     Dosage: 1 MG, DAILY
     Route: 048
  3. HU-TET [Concomitant]
     Indication: SICKLE CELL ANAEMIA
     Dosage: 1 G, QOD
     Route: 048
  4. COUMADIN [Concomitant]
     Indication: DEEP VEIN THROMBOSIS
     Dosage: UNK
     Route: 050
  5. EXJADE [Suspect]
     Indication: SICKLE CELL ANAEMIA
     Dosage: 2000 MG, UNK
     Route: 048
  6. CYMBALTA [Concomitant]
     Indication: NEURALGIA
     Dosage: 60 MG, BID
     Route: 048

REACTIONS (1)
  - CARDIAC ARREST [None]
